FAERS Safety Report 8502153-2 (Version None)
Quarter: 2012Q2

REPORT INFORMATION
  Report Type: 
  Country: None (occurrence: None)
  Receive Date: 20120405
  Receipt Date: 20101207
  Transmission Date: 20120825
  Serious: Yes (Disabling)
  Sender: FDA-Public Use
  Company Number: PHHY2010US61492

PATIENT
  Age: 79 Year
  Sex: Male
  Weight: 82.8 kg

DRUGS (13)
  1. ISOSORBIDE MONONITRATE [Concomitant]
  2. LISINOPRIL [Concomitant]
  3. ACETAMINOPHEN [Concomitant]
  4. SERTRALINE HYDROCHLORIDE [Concomitant]
  5. FISH OIL (FISH OIL) [Concomitant]
  6. ASPIRIN [Concomitant]
  7. YEAST TAB [Concomitant]
  8. CARVEDILOL [Concomitant]
  9. CLONAZEPAM [Suspect]
     Dosage: 1 MG
  10. VITAMIN B12 [Concomitant]
  11. COQ10 (UBIDECARENONE) [Concomitant]
  12. RECLAST [Suspect]
     Indication: OSTEOPENIA
     Dosage: 5 MG/ 100 ML, IV DRIP
     Route: 041
     Dates: start: 20100901
  13. NITROGLYCERIN [Concomitant]

REACTIONS (6)
  - PROTEIN URINE PRESENT [None]
  - PAIN [None]
  - ASTHENIA [None]
  - INFLUENZA LIKE ILLNESS [None]
  - MALAISE [None]
  - BLOOD UREA INCREASED [None]
